FAERS Safety Report 12004890 (Version 2)
Quarter: 2016Q2

REPORT INFORMATION
  Report Type: Spontaneous
  Country: US (occurrence: US)
  Receive Date: 20160204
  Receipt Date: 20160419
  Transmission Date: 20160815
  Serious: Yes (Death, Other)
  Sender: FDA-Public Use
  Company Number: US-PFIZER INC-2016060321

PATIENT
  Age: 80 Year
  Sex: Male

DRUGS (4)
  1. PREPARATION H SUPPOSITORY [Suspect]
     Active Substance: COCOA BUTTER\PHENYLEPHRINE HYDROCHLORIDE
     Indication: ANORECTAL DISCOMFORT
  2. PREPARATION H CREAM MAX STRENGTH [Suspect]
     Active Substance: GLYCERIN\PETROLATUM\PHENYLEPHRINE HYDROCHLORIDE\PRAMOXINE HYDROCHLORIDE
     Indication: HAEMORRHOIDS
     Dosage: (2 OR 3 TIMES) DAILY
     Dates: start: 20151226, end: 201512
  3. PREPARATION H SUPPOSITORY [Suspect]
     Active Substance: COCOA BUTTER\PHENYLEPHRINE HYDROCHLORIDE
     Indication: HAEMORRHOIDS
     Dosage: (2 OR 3 TIMES) DAILY
     Dates: start: 201512, end: 20151228
  4. PREPARATION H CREAM MAX STRENGTH [Suspect]
     Active Substance: GLYCERIN\PETROLATUM\PHENYLEPHRINE HYDROCHLORIDE\PRAMOXINE HYDROCHLORIDE
     Indication: ANORECTAL DISCOMFORT

REACTIONS (3)
  - Organ failure [Unknown]
  - Cardiac failure congestive [Fatal]
  - Acute leukaemia [Fatal]

NARRATIVE: CASE EVENT DATE: 20151229
